FAERS Safety Report 25304812 (Version 1)
Quarter: 2025Q2

REPORT INFORMATION
  Report Type: Report from Study
  Country: US (occurrence: US)
  Receive Date: 20250513
  Receipt Date: 20250513
  Transmission Date: 20250717
  Serious: No
  Sender: SANDOZ
  Company Number: US-SANDOZ-SDZ2025US029497

PATIENT
  Age: 15 Year
  Sex: Male

DRUGS (2)
  1. OMNITROPE [Suspect]
     Active Substance: SOMATROPIN
     Indication: Short stature
     Dosage: 0.5 ML, QD, STRENGTH: 5 MG/ML
     Route: 058
     Dates: start: 202501
  2. OMNITROPE [Suspect]
     Active Substance: SOMATROPIN
     Indication: Short stature
     Dosage: 0.5 ML, QD, STRENGTH: 5 MG/ML
     Route: 058
     Dates: start: 202501

REACTIONS (2)
  - Device use error [Unknown]
  - Needle issue [Unknown]

NARRATIVE: CASE EVENT DATE: 20250401
